FAERS Safety Report 7118541-5 (Version None)
Quarter: 2010Q4

REPORT INFORMATION
  Report Type: 
  Country: None (occurrence: None)
  Receive Date: 20101123
  Receipt Date: 20101116
  Transmission Date: 20110411
  Serious: Yes (Disabling)
  Sender: FDA-Public Use
  Company Number: NO-ABBOTT-10P-122-0685520-00

PATIENT
  Sex: Male

DRUGS (8)
  1. HUMIRA [Suspect]
     Indication: PSORIATIC ARTHROPATHY
     Route: 058
     Dates: start: 20040101, end: 20101001
  2. METHOTREXATE [Suspect]
     Indication: PSORIATIC ARTHROPATHY
     Route: 048
     Dates: start: 20030501, end: 20100701
  3. INSULIN HUMAN [Concomitant]
     Indication: DIABETES MELLITUS
  4. MICARDIS [Concomitant]
     Indication: HYPERTENSION
     Route: 048
  5. LIPITOR [Concomitant]
     Indication: HYPERCHOLESTEROLAEMIA
  6. PLAVIX [Concomitant]
     Indication: ANGINA PECTORIS
     Route: 048
  7. ALBYL-E [Concomitant]
     Indication: ANGINA PECTORIS
     Route: 048
  8. ACETAMINOPHEN W/ PROPOXYPHENE HCL [Concomitant]
     Indication: PAIN
     Route: 048

REACTIONS (3)
  - COUGH [None]
  - DYSPNOEA [None]
  - LUNG DISORDER [None]
